FAERS Safety Report 5644978-7 (Version None)
Quarter: 2008Q1

REPORT INFORMATION
  Report Type: 
  Country: None (occurrence: None)
  Receive Date: 20080229
  Receipt Date: 20071214
  Transmission Date: 20080703
  Serious: No
  Sender: FDA-Public Use
  Company Number: A0699040A

PATIENT
  Age: 62 Year
  Sex: Female

DRUGS (4)
  1. VALTREX [Suspect]
     Indication: GENITAL HERPES
     Dosage: 500MG PER DAY
     Route: 048
     Dates: start: 20060901
  2. IMITREX [Concomitant]
  3. VITAMINS [Concomitant]
  4. FOSAMAX [Concomitant]

REACTIONS (1)
  - DRUG INEFFECTIVE [None]
